FAERS Safety Report 5106362-4 (Version None)
Quarter: 2006Q3

REPORT INFORMATION
  Report Type: 
  Country: None (occurrence: None)
  Receive Date: 20060731
  Receipt Date: 20060419
  Transmission Date: 20061208
  Serious: Yes (Death)
  Sender: FDA-Public Use
  Company Number: US-JNJFOC-20060404508

PATIENT

DRUGS (2)
  1. RISPERDALE [Suspect]
     Indication: BIPOLAR DISORDER
     Dosage: ORAL
     Route: 048
     Dates: start: 20050101
  2. MULTIPLE MEDICATIONS () ALL OTHER THERAPEUTIC PRODUCTS [Concomitant]

REACTIONS (2)
  - COMPLETED SUICIDE [None]
  - DEPRESSION [None]
